FAERS Safety Report 22952990 (Version 5)
Quarter: 2023Q4

REPORT INFORMATION
  Report Type: Report from Study
  Country: DE (occurrence: None)
  Receive Date: 20230918
  Receipt Date: 20231108
  Transmission Date: 20240110
  Serious: Yes (Hospitalization)
  Sender: FDA-Public Use
  Company Number: DE-ROCHE-3422656

PATIENT
  Age: 44 Year
  Sex: Male
  Weight: 89 kg

DRUGS (31)
  1. RITUXIMAB [Suspect]
     Active Substance: RITUXIMAB
     Indication: Follicular lymphoma
     Dosage: C1 DAY 1, 8, 15 AND 22
     Route: 041
     Dates: start: 20230814, end: 20230828
  2. RITUXIMAB [Suspect]
     Active Substance: RITUXIMAB
     Route: 041
     Dates: start: 20230913
  3. EPCORITAMAB [Suspect]
     Active Substance: EPCORITAMAB
     Indication: Follicular lymphoma
     Dosage: PRIMING DOSE; C1, D1
     Route: 058
     Dates: start: 20230814, end: 20230814
  4. EPCORITAMAB [Suspect]
     Active Substance: EPCORITAMAB
     Dosage: INTERMEDIATE DOSE; C1, D8
     Route: 058
     Dates: start: 20230821, end: 20230821
  5. EPCORITAMAB [Suspect]
     Active Substance: EPCORITAMAB
     Dosage: C1, D15
     Route: 058
     Dates: start: 20230828, end: 20230828
  6. EPCORITAMAB [Suspect]
     Active Substance: EPCORITAMAB
     Dosage: RE-PRIMING DOSE
     Route: 058
     Dates: start: 20230913, end: 20230913
  7. LENALIDOMIDE [Suspect]
     Active Substance: LENALIDOMIDE
     Indication: Follicular lymphoma
     Dosage: DAY 1 TO 21 OF EACH 28 DAY CYCLE
     Route: 048
     Dates: start: 20230814
  8. DELIX [Concomitant]
     Dates: start: 2021
  9. AMLODIPINE [Concomitant]
     Active Substance: AMLODIPINE BESYLATE
     Indication: Hypertension
     Dates: start: 2021
  10. DULOXETINE HYDROCHLORIDE [Concomitant]
     Active Substance: DULOXETINE HYDROCHLORIDE
     Indication: Depression
     Dates: start: 201909
  11. INTRATECT [Concomitant]
     Active Substance: HUMAN IMMUNOGLOBULIN G
     Indication: Immunoglobulins decreased
  12. ACETAMINOPHEN [Concomitant]
     Active Substance: ACETAMINOPHEN
     Dates: start: 20230814, end: 20230817
  13. ACETAMINOPHEN [Concomitant]
     Active Substance: ACETAMINOPHEN
     Dates: start: 20230821, end: 20230821
  14. ACETAMINOPHEN [Concomitant]
     Active Substance: ACETAMINOPHEN
     Dates: start: 20230828, end: 20230828
  15. ALLOPURINOL [Concomitant]
     Active Substance: ALLOPURINOL
     Dates: start: 20230814, end: 20230817
  16. CLEMASTINE FUMARATE [Concomitant]
     Active Substance: CLEMASTINE FUMARATE
     Dates: start: 20230814, end: 20230814
  17. CLEMASTINE FUMARATE [Concomitant]
     Active Substance: CLEMASTINE FUMARATE
     Dates: start: 20230821, end: 20230821
  18. CLEMASTINE FUMARATE [Concomitant]
     Active Substance: CLEMASTINE FUMARATE
     Dates: start: 20230828, end: 20230828
  19. ASPIRIN [Concomitant]
     Active Substance: ASPIRIN
     Dates: start: 20230815, end: 20230901
  20. ACYCLOVIR [Concomitant]
     Active Substance: ACYCLOVIR
     Dates: start: 20230815
  21. KALINOR [Concomitant]
     Indication: Hypokalaemia
     Dosage: 40 MOL
     Dates: start: 20230829, end: 20230830
  22. MOVICOL [Concomitant]
     Active Substance: POLYETHYLENE GLYCOL 3350\POTASSIUM CHLORIDE\SODIUM BICARBONATE\SODIUM CHLORIDE
     Indication: Constipation
     Dates: start: 20230829, end: 20230829
  23. PENTACARINAT [Concomitant]
     Active Substance: PENTAMIDINE ISETHIONATE
     Dates: start: 20230830, end: 20230830
  24. LACTULOSE [Concomitant]
     Active Substance: LACTULOSE
     Indication: Constipation
     Dates: start: 20230901, end: 20230902
  25. ENOXAPARIN SODIUM [Concomitant]
     Active Substance: ENOXAPARIN SODIUM
     Dates: start: 20230807, end: 20230808
  26. ENOXAPARIN SODIUM [Concomitant]
     Active Substance: ENOXAPARIN SODIUM
     Dates: start: 20230901, end: 20230905
  27. SULFAMETHOXAZOLE\TRIMETHOPRIM [Concomitant]
     Active Substance: SULFAMETHOXAZOLE\TRIMETHOPRIM
     Dosage: 800/160 MG,
     Dates: start: 20230904
  28. SODIUM PICOSULFATE [Concomitant]
     Active Substance: SODIUM PICOSULFATE
     Dates: start: 20230902, end: 20230902
  29. SODIUM CHLORIDE [Concomitant]
     Active Substance: SODIUM CHLORIDE
     Dates: start: 20230904, end: 20230906
  30. PANTOPRAZOLE [Concomitant]
     Active Substance: PANTOPRAZOLE
     Dates: start: 20230902
  31. PREDNISOLONE [Concomitant]
     Active Substance: PREDNISOLONE
     Dates: start: 20230814

REACTIONS (2)
  - Tumour pain [Recovered/Resolved]
  - Cytokine release syndrome [Recovered/Resolved]

NARRATIVE: CASE EVENT DATE: 20230901
